FAERS Safety Report 7733192-7 (Version None)
Quarter: 2011Q3

REPORT INFORMATION
  Report Type: 
  Country: None (occurrence: None)
  Receive Date: 20110907
  Receipt Date: 20110830
  Transmission Date: 20111222
  Serious: Yes (Hospitalization)
  Sender: FDA-Public Use
  Company Number: US-ASTELLAS-2011US005551

PATIENT

DRUGS (1)
  1. VIBATIV [Suspect]
     Indication: PRODUCT USED FOR UNKNOWN INDICATION
     Dosage: UNK
     Dates: start: 20110510, end: 20110704

REACTIONS (2)
  - THROMBOCYTOPENIA [None]
  - DEVICE RELATED SEPSIS [None]
